FAERS Safety Report 23445742 (Version 2)
Quarter: 2024Q3

REPORT INFORMATION
  Report Type: Report from Study
  Country: US (occurrence: US)
  Receive Date: 20240126
  Receipt Date: 20240807
  Transmission Date: 20241016
  Serious: Yes (Hospitalization, Other)
  Sender: ABBVIE
  Company Number: US-ABBVIE-5603283

PATIENT
  Age: 82 Year
  Sex: Female

DRUGS (2)
  1. HUMIRA [Suspect]
     Active Substance: ADALIMUMAB
     Indication: Psoriasis
     Dosage: FORM STRENGTH: 40 MILLIGRAM LAST ADMIN DATE: JUL 2023  CITRATE FREE
     Route: 058
     Dates: start: 20230718
  2. HUMIRA [Suspect]
     Active Substance: ADALIMUMAB
     Dosage: CITRATE FREE
     Route: 058
     Dates: start: 202307

REACTIONS (11)
  - Renal failure [Recovered/Resolved]
  - Pruritus [Not Recovered/Not Resolved]
  - Nerve compression [Unknown]
  - Loss of personal independence in daily activities [Not Recovered/Not Resolved]
  - Skin papilloma [Not Recovered/Not Resolved]
  - Melanocytic naevus [Recovered/Resolved]
  - Headache [Not Recovered/Not Resolved]
  - Arthritis [Not Recovered/Not Resolved]
  - Fall [Unknown]
  - Concussion [Not Recovered/Not Resolved]
  - Myocardial infarction [Recovering/Resolving]

NARRATIVE: CASE EVENT DATE: 20230901
